FAERS Safety Report 8205928-2 (Version None)
Quarter: 2012Q1

REPORT INFORMATION
  Report Type: 
  Country: None (occurrence: None)
  Receive Date: 20120309
  Receipt Date: 20120301
  Transmission Date: 20120608
  Serious: Yes (Other)
  Sender: FDA-Public Use
  Company Number: 2012SP011258

PATIENT
  Age: 53 Year
  Sex: Male

DRUGS (3)
  1. INTERFERON [Suspect]
     Indication: HEPATITIS C
  2. VICTRELIS [Suspect]
     Indication: HEPATITIS C
     Dosage: 800 MG;TID;PO
     Route: 048
     Dates: start: 20111111
  3. RIBAVIRIN [Suspect]
     Indication: HEPATITIS C

REACTIONS (3)
  - ACUTE RESPIRATORY FAILURE [None]
  - PAIN IN EXTREMITY [None]
  - FLANK PAIN [None]
